FAERS Safety Report 10469280 (Version 1)
Quarter: 2014Q3

REPORT INFORMATION
  Report Type: Spontaneous
  Country: CA (occurrence: CA)
  Receive Date: 20140923
  Receipt Date: 20140923
  Transmission Date: 20150326
  Serious: Yes (Hospitalization, Other)
  Sender: FDA-Public Use
  Company Number: CA-AMGEN-CANSP2014072016

PATIENT
  Age: 60 Year
  Sex: Female

DRUGS (13)
  1. URSO [Concomitant]
     Active Substance: URSODIOL
     Indication: LIVER DISORDER
     Dosage: UNK
  2. VITAMIN B3 [Concomitant]
     Active Substance: NIACIN
     Dosage: UNK
  3. ENBREL [Suspect]
     Active Substance: ETANERCEPT
     Indication: RHEUMATOID ARTHRITIS
     Dosage: 50 MG, QWK
     Route: 065
     Dates: start: 20091105
  4. SYNTHROID [Concomitant]
     Active Substance: LEVOTHYROXINE SODIUM
     Dosage: UNK
  5. ZYMAR [Concomitant]
     Active Substance: GATIFLOXACIN
     Dosage: 4 TIMES
  6. ATROPIN                            /00002801/ [Concomitant]
     Indication: EYE OPERATION
     Dosage: UNK UNK, BID
  7. IRON [Concomitant]
     Active Substance: IRON
     Dosage: UNK
  8. PROBIOTICS                         /07325001/ [Concomitant]
     Dosage: UNK
  9. METHOTREXATE [Concomitant]
     Active Substance: METHOTREXATE
     Dosage: UNK
  10. OMEGA 3                            /01333901/ [Concomitant]
     Dosage: UNK
  11. VITAMIN B12 [Concomitant]
     Active Substance: CYANOCOBALAMIN
     Dosage: UNK
  12. VITAMIN C [Concomitant]
     Active Substance: ASCORBIC ACID
     Dosage: UNK
  13. PREDNISOLONE. [Concomitant]
     Active Substance: PREDNISOLONE
     Dosage: 4 TIMES

REACTIONS (1)
  - Retinal detachment [Recovering/Resolving]

NARRATIVE: CASE EVENT DATE: 201406
